FAERS Safety Report 8595139-3 (Version None)
Quarter: 2012Q3

REPORT INFORMATION
  Report Type: 
  Country: None (occurrence: None)
  Receive Date: 20120815
  Receipt Date: 20120809
  Transmission Date: 20120928
  Serious: Yes (Hospitalization)
  Sender: FDA-Public Use
  Company Number: DE-SANOFI-AVENTIS-2012SA053273

PATIENT
  Age: 56 Year
  Sex: Male
  Weight: 57.7 kg

DRUGS (8)
  1. DOCETAXEL [Suspect]
     Route: 041
     Dates: start: 20120430, end: 20120430
  2. CISPLATIN [Suspect]
     Route: 041
     Dates: start: 20120430, end: 20120430
  3. FLUOROURACIL [Suspect]
     Route: 041
  4. CETUXIMAB [Suspect]
     Route: 041
     Dates: start: 20120701, end: 20120701
  5. FLUOROURACIL [Suspect]
     Route: 041
     Dates: start: 20120430, end: 20120430
  6. DOCETAXEL [Suspect]
     Route: 041
     Dates: start: 20120701, end: 20120701
  7. CETUXIMAB [Suspect]
     Route: 041
     Dates: start: 20120430, end: 20120430
  8. CISPLATIN [Suspect]
     Route: 041

REACTIONS (6)
  - GENERAL PHYSICAL HEALTH DETERIORATION [None]
  - RENAL FAILURE [None]
  - ABDOMINAL PAIN [None]
  - CONSTIPATION [None]
  - BLOOD CREATININE INCREASED [None]
  - DEHYDRATION [None]
